FAERS Safety Report 9506504 (Version 2)
Quarter: 2013Q4

REPORT INFORMATION
  Report Type: Report from Study
  Country: US (occurrence: US)
  Receive Date: 20130906
  Receipt Date: 20131031
  Transmission Date: 20140711
  Serious: Yes (Other)
  Sender: FDA-Public Use
  Company Number: PHEH2013US018683

PATIENT
  Age: 34 Year
  Sex: Female
  Weight: 59.41 kg

DRUGS (7)
  1. GILENYA [Suspect]
     Indication: RELAPSING-REMITTING MULTIPLE SCLEROSIS
     Dosage: 0.5 MG, QD
     Route: 048
     Dates: start: 201308
  2. LAMICTAL [Concomitant]
     Indication: CONVULSION
     Dosage: 1 DF, BID
     Route: 048
     Dates: start: 201302
  3. ADVEL [Concomitant]
     Indication: PAIN
     Dosage: 4 DF, PRN
     Route: 048
  4. BACLOFEN [Concomitant]
     Indication: MUSCLE SPASTICITY
     Dosage: 0.5 MG, TID
     Route: 048
  5. BACLOFEN [Concomitant]
     Dosage: 1 DF, TID
     Route: 048
  6. OXYCODON [Concomitant]
     Indication: PAIN
     Dosage: 5 DF, QD
     Route: 048
  7. PROZAC [Concomitant]
     Indication: DEPRESSION
     Dosage: 20 MG, QD
     Route: 048

REACTIONS (9)
  - Fall [Unknown]
  - Balance disorder [Unknown]
  - Speech disorder [Unknown]
  - Musculoskeletal stiffness [Unknown]
  - Clumsiness [Unknown]
  - Amnesia [Unknown]
  - Neurogenic bladder [Unknown]
  - Pain [Unknown]
  - Headache [Unknown]
